FAERS Safety Report 10252067 (Version 1)
Quarter: 2014Q2

REPORT INFORMATION
  Report Type: Spontaneous
  Country: CA (occurrence: CA)
  Receive Date: 20140623
  Receipt Date: 20140623
  Transmission Date: 20141212
  Serious: Yes (Other)
  Sender: FDA-Public Use
  Company Number: PHHY2014CA075821

PATIENT
  Sex: Female

DRUGS (1)
  1. SANDOSTATIN (OCTREOTIDE ACETATE) [Suspect]
     Dosage: UNK UKN, UNK
     Dates: start: 2013

REACTIONS (3)
  - Hepatic cirrhosis [Unknown]
  - Drug intolerance [Unknown]
  - Blood pressure decreased [Unknown]
